FAERS Safety Report 6062293-7 (Version None)
Quarter: 2009Q1

REPORT INFORMATION
  Report Type: 
  Country: None (occurrence: None)
  Receive Date: 20090203
  Receipt Date: 20090126
  Transmission Date: 20090719
  Serious: Yes (Hospitalization)
  Sender: FDA-Public Use
  Company Number: FI-BRISTOL-MYERS SQUIBB COMPANY-14484422

PATIENT
  Age: 22 Year
  Sex: Male
  Weight: 130 kg

DRUGS (5)
  1. ABILIFY [Suspect]
     Indication: BIPOLAR DISORDER
     Dates: start: 20081001
  2. ABILIFY [Suspect]
     Indication: DEPRESSION
     Dates: start: 20081001
  3. LEVEMIR [Concomitant]
  4. NOVORAPID [Concomitant]
  5. METFORMIN [Concomitant]

REACTIONS (2)
  - DIABETES MELLITUS [None]
  - METABOLIC SYNDROME [None]
